FAERS Safety Report 7986458-X (Version None)
Quarter: 2011Q4

REPORT INFORMATION
  Report Type: 
  Country: None (occurrence: None)
  Receive Date: 20111216
  Receipt Date: 20110727
  Transmission Date: 20120403
  Serious: No
  Sender: FDA-Public Use
  Company Number: US-BRISTOL-MYERS SQUIBB COMPANY-15908684

PATIENT
  Age: 15 Year
  Sex: Female

DRUGS (1)
  1. ABILIFY [Suspect]
     Indication: ATTENTION DEFICIT/HYPERACTIVITY DISORDER
     Dosage: DECREASED TO 2.5MG
     Dates: start: 20110520, end: 20110101

REACTIONS (6)
  - TREMOR [None]
  - MUSCULOSKELETAL STIFFNESS [None]
  - AKATHISIA [None]
  - MUSCULOSKELETAL PAIN [None]
  - HEADACHE [None]
  - MIGRAINE [None]
